FAERS Safety Report 8177645-9 (Version None)
Quarter: 2012Q1

REPORT INFORMATION
  Report Type: 
  Country: None (occurrence: None)
  Receive Date: 20120301
  Receipt Date: 20120223
  Transmission Date: 20120608
  Serious: Yes (Disabling)
  Sender: FDA-Public Use
  Company Number: PHHY2012IT015696

PATIENT
  Sex: Male

DRUGS (3)
  1. TAXOTERE [Concomitant]
     Indication: PROSTATE CANCER METASTATIC
     Dosage: 60 MG, UNK
     Route: 042
     Dates: start: 20100721
  2. ZOMETA [Suspect]
     Indication: PROSTATE CANCER METASTATIC
     Dosage: 4 MG/5ML, CYCLIC DOSAGE
     Route: 042
     Dates: start: 20100721, end: 20120105
  3. EPREX [Concomitant]
     Dosage: 4000 UL, UNK
     Route: 059
     Dates: start: 20110721

REACTIONS (1)
  - PERIODONTITIS [None]
